FAERS Safety Report 8198881-1 (Version None)
Quarter: 2012Q1

REPORT INFORMATION
  Report Type: 
  Country: None (occurrence: None)
  Receive Date: 20120306
  Receipt Date: 20120221
  Transmission Date: 20120608
  Serious: Yes (Hospitalization, Other)
  Sender: FDA-Public Use
  Company Number: 2012P1005736

PATIENT
  Age: 16 Year
  Sex: Male
  Weight: 68.0396 kg

DRUGS (6)
  1. SOLODYN [Suspect]
     Indication: ACNE
     Dosage: 65 MG; QD; PO
     Route: 048
     Dates: start: 20120214, end: 20120216
  2. SOLODYN [Suspect]
     Indication: SUBCUTANEOUS ABSCESS
     Dosage: 65 MG; QD; PO
     Route: 048
     Dates: start: 20120214, end: 20120216
  3. PULMICORT [Concomitant]
  4. ALLEGRA [Concomitant]
  5. UNSPECIFIED VITAMINS [Concomitant]
  6. CLINDAMYCIN [Concomitant]

REACTIONS (5)
  - EPISTAXIS [None]
  - PLATELET FUNCTION TEST ABNORMAL [None]
  - RED BLOOD CELL COUNT ABNORMAL [None]
  - ANGIOFIBROMA [None]
  - NEUTROPENIA [None]
